FAERS Safety Report 6021347-1 (Version None)
Quarter: 2008Q4

REPORT INFORMATION
  Report Type: 
  Country: None (occurrence: None)
  Receive Date: 20081229
  Receipt Date: 20081229
  Transmission Date: 20090506
  Serious: Yes (Other)
  Sender: FDA-Public Use
  Company Number: A0761678A

PATIENT
  Sex: Male

DRUGS (5)
  1. ADVAIR DISKUS 250/50 [Suspect]
     Indication: ASTHMA
     Dosage: 2PUFF TWICE PER DAY
     Route: 055
     Dates: start: 20070101
  2. NASONEX [Concomitant]
  3. FLOVENT [Concomitant]
  4. PROAIR HFA [Concomitant]
  5. PREVACID [Concomitant]

REACTIONS (5)
  - ASTHMA [None]
  - COUGH [None]
  - ILL-DEFINED DISORDER [None]
  - PEAK EXPIRATORY FLOW RATE DECREASED [None]
  - SKIN DISCOLOURATION [None]
